FAERS Safety Report 5820921-2 (Version None)
Quarter: 2008Q3

REPORT INFORMATION
  Report Type: 
  Country: None (occurrence: None)
  Receive Date: 20080724
  Receipt Date: 20080718
  Transmission Date: 20090109
  Serious: Yes (Disabling)
  Sender: FDA-Public Use
  Company Number: PHHO2005JP00571

PATIENT
  Sex: Male
  Weight: 71 kg

DRUGS (5)
  1. FTY 720 FTY+CAP [Suspect]
     Indication: RENAL TRANSPLANT
     Dosage: 2.5MG
     Route: 048
     Dates: start: 20040310, end: 20051013
  2. NEORAL [Suspect]
     Indication: RENAL TRANSPLANT
     Route: 048
     Dates: start: 20040310
  3. PREDONINE [Suspect]
     Indication: RENAL TRANSPLANT
     Route: 048
     Dates: start: 20040310
  4. HUMALOG [Concomitant]
     Indication: DIABETES MELLITUS
     Dosage: UNK, UNK
     Route: 058
     Dates: start: 20040318
  5. HUMACART-N [Concomitant]
     Indication: DIABETES MELLITUS
     Dosage: UNK, UNK
     Route: 058
     Dates: start: 20040318

REACTIONS (8)
  - DIABETIC BULLOSIS [None]
  - DIABETIC GANGRENE [None]
  - ERYTHEMA [None]
  - EXTREMITY NECROSIS [None]
  - IMPAIRED HEALING [None]
  - OEDEMA PERIPHERAL [None]
  - TOE AMPUTATION [None]
  - WOUND INFECTION [None]
